FAERS Safety Report 4336128-4 (Version None)
Quarter: 2004Q2

REPORT INFORMATION
  Report Type: 
  Country: None (occurrence: None)
  Receive Date: 20040409
  Receipt Date: 20040303
  Transmission Date: 20050107
  Serious: Yes (Life-Threatening)
  Sender: FDA-Public Use
  Company Number: JP-MERCK-0403USA00661

PATIENT
  Age: 15 Year
  Sex: Male

DRUGS (7)
  1. CEFTAZIDIME [Concomitant]
     Indication: SEPSIS
     Route: 065
     Dates: start: 20040220
  2. PRIMAXIN [Suspect]
     Indication: SEPSIS
     Route: 042
     Dates: start: 20040221, end: 20040303
  3. DOBUTAMINE HYDROCHLORIDE [Concomitant]
     Indication: SEPSIS
     Route: 065
     Dates: start: 20040220, end: 20040308
  4. DOPAMINE HYDROCHLORIDE [Concomitant]
     Indication: NEUTROPENIA
     Route: 065
     Dates: start: 20040220, end: 20040308
  5. FILGRASTIM [Concomitant]
     Indication: NEUTROPENIA
     Route: 065
     Dates: start: 20040210, end: 20040302
  6. MICAFUNGIN [Suspect]
     Indication: SEPSIS
     Route: 042
     Dates: start: 20040219, end: 20040303
  7. MINOCYCLINE HYDROCHLORIDE [Concomitant]
     Indication: SEPSIS
     Route: 065
     Dates: start: 20040219, end: 20040302

REACTIONS (1)
  - HAEMOLYTIC URAEMIC SYNDROME [None]
